FAERS Safety Report 17523401 (Version 4)
Quarter: 2020Q3

REPORT INFORMATION
  Report Type: Report from Study
  Country: None (occurrence: US)
  Receive Date: 20200311
  Receipt Date: 20200711
  Transmission Date: 20201102
  Serious: Yes (Hospitalization, Other)
  Sender: FDA-Public Use
  Company Number: US-ABBVIE-19K-163-3195554-00

PATIENT
  Sex: Female
  Weight: 81.72 kg

DRUGS (5)
  1. HUMIRA [Suspect]
     Active Substance: ADALIMUMAB
     Indication: PSORIATIC ARTHROPATHY
     Route: 058
     Dates: start: 2019, end: 20200627
  2. CARVEDILOL. [Concomitant]
     Active Substance: CARVEDILOL
     Indication: HYPERTENSION
  3. EPIPEN [Concomitant]
     Active Substance: EPINEPHRINE
     Indication: PRODUCT USED FOR UNKNOWN INDICATION
  4. ATORVASTATIN [Concomitant]
     Active Substance: ATORVASTATIN
     Indication: PRODUCT USED FOR UNKNOWN INDICATION
  5. HUMIRA [Suspect]
     Active Substance: ADALIMUMAB
     Indication: PSORIASIS
     Route: 058
     Dates: start: 2013, end: 2016

REACTIONS (16)
  - Knee arthroplasty [Recovered/Resolved]
  - Skin exfoliation [Not Recovered/Not Resolved]
  - Hip arthroplasty [Recovered/Resolved]
  - Inguinal hernia [Recovered/Resolved]
  - Joint surgery [Unknown]
  - Surgery [Unknown]
  - Knee operation [Unknown]
  - Cardiac disorder [Recovered/Resolved]
  - Cartilage atrophy [Recovered/Resolved]
  - Hip surgery [Unknown]
  - Knee operation [Unknown]
  - Psoriasis [Unknown]
  - Hip surgery [Unknown]
  - Pruritus [Unknown]
  - Therapeutic response shortened [Not Recovered/Not Resolved]
  - Pain [Not Recovered/Not Resolved]

NARRATIVE: CASE EVENT DATE: 2016
